FAERS Safety Report 4870694-5 (Version None)
Quarter: 2006Q1

REPORT INFORMATION
  Report Type: 
  Country: None (occurrence: None)
  Receive Date: 20060103
  Receipt Date: 20051110
  Transmission Date: 20060701
  Serious: Yes (Death, Life-Threatening, Hospitalization)
  Sender: FDA-Public Use
  Company Number: JP-JPN-A20052729

PATIENT
  Age: 2 Year
  Sex: Male
  Weight: 12 kg

DRUGS (14)
  1. ALKERAN [Suspect]
     Indication: ALLOGENIC BONE MARROW TRANSPLANTATION THERAPY
     Dosage: 46MGM2 PER DAY
     Route: 042
     Dates: start: 20050521, end: 20050523
  2. PROGRAF [Suspect]
     Route: 065
  3. NEUTROGIN [Concomitant]
     Dates: start: 20050604, end: 20050818
  4. TACROLIMUS HYDRATE [Concomitant]
     Indication: IMMUNOSUPPRESSANT DRUG THERAPY
     Route: 065
     Dates: start: 20050524, end: 20050626
  5. METHOTREXATE [Concomitant]
     Indication: IMMUNOSUPPRESSANT DRUG THERAPY
     Route: 065
     Dates: start: 20050526, end: 20050605
  6. SOLU-MEDROL [Concomitant]
     Indication: IMMUNOSUPPRESSANT DRUG THERAPY
     Dates: start: 20050625, end: 20050901
  7. FLUMARIN [Concomitant]
     Route: 042
     Dates: start: 20050518, end: 20050530
  8. FOSFLUCONAZOLE [Concomitant]
     Route: 042
     Dates: start: 20050521, end: 20050713
  9. MEROPEN [Concomitant]
     Route: 042
     Dates: start: 20050531, end: 20050901
  10. MINOCYCLINE HCL [Concomitant]
     Route: 042
     Dates: start: 20050603, end: 20050712
  11. TARGOCID [Concomitant]
     Route: 042
     Dates: start: 20050605, end: 20050822
  12. FUNGUARD [Concomitant]
     Route: 042
     Dates: start: 20050605, end: 20050901
  13. ZOVIRAX [Concomitant]
     Route: 048
     Dates: start: 20050525, end: 20050901
  14. KYTRIL [Concomitant]
     Route: 042
     Dates: start: 20050518, end: 20050524

REACTIONS (11)
  - ACUTE RESPIRATORY DISTRESS SYNDROME [None]
  - C-REACTIVE PROTEIN INCREASED [None]
  - DIARRHOEA [None]
  - HAEMATOCHEZIA [None]
  - HYPERBILIRUBINAEMIA [None]
  - LIVER DISORDER [None]
  - PYREXIA [None]
  - RASH [None]
  - SEPSIS [None]
  - THROMBOTIC MICROANGIOPATHY [None]
  - VENOOCCLUSIVE LIVER DISEASE [None]
